FAERS Safety Report 25407872 (Version 3)
Quarter: 2025Q2

REPORT INFORMATION
  Report Type: Spontaneous
  Country: US (occurrence: US)
  Receive Date: 20250606
  Receipt Date: 20250623
  Transmission Date: 20250716
  Serious: No
  Sender: PFIZER
  Company Number: US-PFIZER INC-PV202500067973

PATIENT
  Age: 57 Year
  Sex: Male

DRUGS (4)
  1. INLYTA [Suspect]
     Active Substance: AXITINIB
     Dates: start: 2020, end: 2021
  2. INLYTA [Suspect]
     Active Substance: AXITINIB
     Dates: start: 202506
  3. KEYTRUDA [Suspect]
     Active Substance: PEMBROLIZUMAB
  4. KEYTRUDA [Suspect]
     Active Substance: PEMBROLIZUMAB
     Dates: start: 202506

REACTIONS (4)
  - Headache [Unknown]
  - Fatigue [Not Recovered/Not Resolved]
  - Abdominal pain upper [Unknown]
  - Protein total abnormal [Unknown]
